FAERS Safety Report 5857555-X (Version None)
Quarter: 2008Q3

REPORT INFORMATION
  Report Type: 
  Country: None (occurrence: None)
  Receive Date: 20080826
  Receipt Date: 20080605
  Transmission Date: 20090109
  Serious: No
  Sender: FDA-Public Use
  Company Number: US-BAYER-200825549NA

PATIENT
  Age: 22 Year
  Sex: Female
  Weight: 61 kg

DRUGS (1)
  1. MIRENA [Suspect]
     Indication: CONTRACEPTION
     Route: 015
     Dates: start: 20080208

REACTIONS (6)
  - BACK PAIN [None]
  - FATIGUE [None]
  - MOOD ALTERED [None]
  - NAUSEA [None]
  - PROCEDURAL PAIN [None]
  - RASH [None]
